FAERS Safety Report 5084501-1 (Version None)
Quarter: 2006Q3

REPORT INFORMATION
  Report Type: 
  Country: None (occurrence: None)
  Receive Date: 20060814
  Receipt Date: 20060803
  Transmission Date: 20061208
  Serious: Yes (Death)
  Sender: FDA-Public Use
  Company Number: HQWYE790103AUG06

PATIENT
  Age: 80 Year
  Sex: Male

DRUGS (2)
  1. PANTOPRAZOLE SODIUM [Suspect]
     Indication: BARRETT'S OESOPHAGUS
     Dosage: 40 MG 1X PER 1 DAY
     Route: 048
     Dates: start: 20051220
  2. PANTOPRAZOLE SODIUM [Suspect]
     Indication: HIATUS HERNIA
     Dosage: 40 MG 1X PER 1 DAY
     Route: 048
     Dates: start: 20051220

REACTIONS (1)
  - PROSTATE CANCER [None]
